FAERS Safety Report 20699218 (Version 3)
Quarter: 2022Q2

REPORT INFORMATION
  Report Type: Spontaneous
  Country: US (occurrence: US)
  Receive Date: 20220412
  Receipt Date: 20220503
  Transmission Date: 20220721
  Serious: No
  Sender: FDA-Public Use
  Company Number: US-SAGE-2022SAGE000029

PATIENT
  Age: 34 Year
  Sex: Female
  Weight: 124.72 kg

DRUGS (5)
  1. ZULRESSO [Suspect]
     Active Substance: BREXANOLONE
     Indication: Perinatal depression
     Dosage: UNK
     Route: 042
     Dates: start: 20220329
  2. ZULRESSO [Suspect]
     Active Substance: BREXANOLONE
     Dosage: 90 MCG/KG/HR (DOSE AT THE TIME OF EVENT SEDATION COMPLICATION)
     Route: 042
     Dates: end: 20220331
  3. ZULRESSO [Suspect]
     Active Substance: BREXANOLONE
     Dosage: 60 MCG/KG/HR
     Route: 042
     Dates: start: 20220331
  4. ZULRESSO [Suspect]
     Active Substance: BREXANOLONE
     Dosage: UNK
     Route: 042
     Dates: end: 20220401
  5. PRILOSEC [Concomitant]
     Active Substance: OMEPRAZOLE MAGNESIUM
     Indication: Product used for unknown indication
     Dosage: UNK
     Route: 065

REACTIONS (3)
  - Feeling abnormal [Recovered/Resolved]
  - Somnolence [Unknown]
  - Dizziness [Recovered/Resolved]

NARRATIVE: CASE EVENT DATE: 20220331
